FAERS Safety Report 9640425 (Version 3)
Quarter: 2013Q4

REPORT INFORMATION
  Report Type: Spontaneous
  Country: JP (occurrence: JP)
  Receive Date: 20131023
  Receipt Date: 20131217
  Transmission Date: 20140711
  Serious: Yes (Other)
  Sender: FDA-Public Use
  Company Number: JP-PFIZER INC-2013289696

PATIENT
  Age: 79 Year
  Sex: Female

DRUGS (11)
  1. ALDACTONE A [Suspect]
     Dosage: UNK
     Dates: start: 201309, end: 20131007
  2. BAYASPIRIN [Concomitant]
  3. LASIX [Concomitant]
  4. LANSOPRAZOLE [Concomitant]
  5. ARTIST [Concomitant]
  6. WARFARIN [Concomitant]
  7. COVERSYL [Concomitant]
  8. URINORM [Concomitant]
  9. MAGMITT [Concomitant]
  10. NIFEDIPINE [Concomitant]
  11. SAMSCA [Concomitant]

REACTIONS (2)
  - Mastitis [Recovered/Resolved]
  - Breast swelling [Recovered/Resolved]
